FAERS Safety Report 8520892-4 (Version None)
Quarter: 2012Q3

REPORT INFORMATION
  Report Type: 
  Country: None (occurrence: None)
  Receive Date: 20120719
  Receipt Date: 20120705
  Transmission Date: 20120928
  Serious: Yes (Other)
  Sender: FDA-Public Use
  Company Number: US-SANOFI-AVENTIS-2012SA048596

PATIENT
  Age: 33 Year
  Sex: Male

DRUGS (2)
  1. ANALGESICS [Suspect]
     Dates: start: 20100101
  2. AMBIEN [Suspect]
     Dates: start: 20060101

REACTIONS (4)
  - OVERDOSE [None]
  - IMPAIRED DRIVING ABILITY [None]
  - DRUG ABUSE [None]
  - DRUG TOLERANCE [None]
